FAERS Safety Report 10798430 (Version 1)
Quarter: 2015Q1

REPORT INFORMATION
  Report Type: Spontaneous
  Country: US (occurrence: US)
  Receive Date: 20150216
  Receipt Date: 20150216
  Transmission Date: 20150721
  Serious: No
  Sender: FDA-Public Use
  Company Number: US-GLAXOSMITHKLINE-US2014GSK051167

PATIENT
  Age: 26 Year
  Sex: Female
  Weight: 63.49 kg

DRUGS (2)
  1. TAMIFLU [Interacting]
     Active Substance: OSELTAMIVIR PHOSPHATE
     Indication: INFLUENZA
     Dosage: UNK UNK, U
     Route: 065
     Dates: start: 20141120
  2. WELLBUTRIN XL [Suspect]
     Active Substance: BUPROPION HYDROCHLORIDE
     Indication: DEPRESSION
     Dosage: 150 MG, QD
     Dates: start: 20141113, end: 20141123

REACTIONS (3)
  - Panic attack [Not Recovered/Not Resolved]
  - Drug interaction [Unknown]
  - Influenza [Unknown]

NARRATIVE: CASE EVENT DATE: 20141119
